FAERS Safety Report 9007209 (Version 1)
Quarter: 2013Q1

REPORT INFORMATION
  Report Type: Spontaneous
  Country: US (occurrence: US)
  Receive Date: 20130110
  Receipt Date: 20130110
  Transmission Date: 20140127
  Serious: No
  Sender: FDA-Public Use
  Company Number: US-BAYER-2012-135191

PATIENT
  Age: 61 Year
  Sex: Female
  Weight: 91.61 kg

DRUGS (5)
  1. BAYER CHEWABLE LOW DOSE BABY ASPIRIN TABLET ORANGE [Suspect]
     Dosage: 1 DF, QD
     Route: 048
  2. ALEVE CAPLET/TABLET,MIDOL EXTENDED RELIEF CAPLET [Suspect]
     Indication: ARTHRITIS
     Dosage: 1 DF, BID
     Route: 048
     Dates: start: 2009
  3. MICARDIS [Concomitant]
  4. AMLODIPINE BESYLATE [Concomitant]
  5. PRAVASTATIN [Concomitant]

REACTIONS (2)
  - Off label use [None]
  - Incorrect drug administration duration [None]
